FAERS Safety Report 8863801 (Version 1)
Quarter: 2012Q4

REPORT INFORMATION
  Report Type: 
  Country: US (occurrence: US)
  Receive Date: 20121024
  Receipt Date: 20121024
  Transmission Date: 20130627
  Serious: No
  Sender: FDA-Public Use
  Company Number: US-AMGEN-USASP2011064318

PATIENT
  Age: 69 Year
  Sex: Female
  Weight: 104.31 kg

DRUGS (9)
  1. ENBREL [Suspect]
     Indication: PRODUCT USED FOR UNKNOWN INDICATION
     Dosage: 50 mg, qwk
  2. CYMBALTA [Concomitant]
     Dosage: 20 mg, UNK
     Route: 048
  3. RESTORIL                           /00054301/ [Concomitant]
     Dosage: 15 mg, UNK
     Route: 048
  4. VOLTAREN                           /00372301/ [Concomitant]
     Dosage: 25 mg, UNK
     Route: 048
  5. VICODIN [Concomitant]
     Dosage: 5 mg, UNK
     Route: 048
  6. VICODIN [Concomitant]
     Dosage: 500 mg, UNK
     Route: 048
  7. FOLIC ACID [Concomitant]
     Dosage: 1 mg, UNK
     Route: 048
  8. METHOTREXATE [Concomitant]
     Dosage: 2.5 mg, UNK
     Route: 048
  9. PREDNISONE [Concomitant]
     Dosage: 10 mg, UNK
     Route: 048

REACTIONS (1)
  - Alopecia [Unknown]
